FAERS Safety Report 17488559 (Version 2)
Quarter: 2020Q1

REPORT INFORMATION
  Report Type: Report from Study
  Country: AR (occurrence: AR)
  Receive Date: 20200303
  Receipt Date: 20200320
  Transmission Date: 20200409
  Serious: Yes (Other)
  Sender: FDA-Public Use
  Company Number: NVSC2020AR056816

PATIENT
  Sex: Male

DRUGS (13)
  1. TASIGNA [Suspect]
     Active Substance: NILOTINIB
     Indication: CHRONIC MYELOID LEUKAEMIA
     Dosage: 600 MG, QD
     Route: 048
     Dates: start: 20151022, end: 20161013
  2. TASIGNA [Suspect]
     Active Substance: NILOTINIB
     Indication: CHORIOMENINGITIS LYMPHOCYTIC
     Dosage: 150 MG, Q12H
     Route: 048
     Dates: start: 20161226, end: 20180309
  3. VIT D [Concomitant]
     Active Substance: VITAMIN D NOS
     Indication: PRODUCT USED FOR UNKNOWN INDICATION
     Route: 065
  4. TASIGNA [Suspect]
     Active Substance: NILOTINIB
     Dosage: 100 MG, Q12H
     Route: 048
  5. VITAMIN B12 [Concomitant]
     Active Substance: CYANOCOBALAMIN
     Indication: PRODUCT USED FOR UNKNOWN INDICATION
     Route: 065
  6. TASIGNA [Suspect]
     Active Substance: NILOTINIB
     Dosage: UNK
     Route: 048
     Dates: end: 20180921
  7. TASIGNA [Suspect]
     Active Substance: NILOTINIB
     Dosage: 200 MG, Q12H
     Route: 048
  8. ALLOPURINOL. [Concomitant]
     Active Substance: ALLOPURINOL
     Indication: PRODUCT USED FOR UNKNOWN INDICATION
     Dosage: 300 MG (300 TO 100 MG, AS REPORTED)
     Route: 065
  9. TASIGNA [Suspect]
     Active Substance: NILOTINIB
     Dosage: 400 UNK
     Route: 048
  10. TASIGNA [Suspect]
     Active Substance: NILOTINIB
     Dosage: UNK
     Route: 048
     Dates: start: 20180921
  11. RANITIDINE. [Concomitant]
     Active Substance: RANITIDINE
     Indication: PRODUCT USED FOR UNKNOWN INDICATION
     Dosage: 300 MG
     Route: 065
  12. OMEPRAZOLE. [Concomitant]
     Active Substance: OMEPRAZOLE
     Indication: PRODUCT USED FOR UNKNOWN INDICATION
     Dosage: 40 MG (20 TO 40 MG)
     Route: 065
  13. FOLIC ACID. [Concomitant]
     Active Substance: FOLIC ACID
     Indication: PRODUCT USED FOR UNKNOWN INDICATION
     Route: 065

REACTIONS (8)
  - Glaucoma [Not Recovered/Not Resolved]
  - Liver disorder [Unknown]
  - Blindness [Not Recovered/Not Resolved]
  - Product use in unapproved indication [Unknown]
  - Glucose tolerance impaired [Unknown]
  - Chronic hepatitis [Unknown]
  - Hepatotoxicity [Unknown]
  - Transaminases increased [Unknown]
